FAERS Safety Report 9144834 (Version 1)
Quarter: 2013Q1

REPORT INFORMATION
  Report Type: Spontaneous
  Country: US (occurrence: US)
  Receive Date: 20130307
  Receipt Date: 20130307
  Transmission Date: 20140127
  Serious: No
  Sender: FDA-Public Use
  Company Number: US-009507513-1303USA001349

PATIENT
  Age: 36 Year
  Sex: Male

DRUGS (2)
  1. ZETIA [Suspect]
     Dosage: UNK
     Route: 048
     Dates: start: 201301
  2. ZETIA [Suspect]
     Dosage: UNK
     Route: 048
     Dates: start: 2013

REACTIONS (2)
  - Pruritus [Recovered/Resolved]
  - Rash [Recovered/Resolved]
